FAERS Safety Report 6577650-X (Version None)
Quarter: 2010Q1

REPORT INFORMATION
  Report Type: 
  Country: None (occurrence: None)
  Receive Date: 20100211
  Receipt Date: 20100202
  Transmission Date: 20100710
  Serious: Yes (Hospitalization)
  Sender: FDA-Public Use
  Company Number: PHHY2009GB56986

PATIENT
  Sex: Male

DRUGS (2)
  1. CLOZARIL [Suspect]
     Indication: SCHIZOPHRENIA
     Dosage: UNK
     Route: 048
     Dates: start: 20000721
  2. CLOZARIL [Suspect]
     Dosage: UNK
     Dates: end: 20091214

REACTIONS (4)
  - BLOOD ELECTROLYTES ABNORMAL [None]
  - BLOOD UREA ABNORMAL [None]
  - SYNCOPE [None]
  - URINARY TRACT INFECTION [None]
